FAERS Safety Report 9309954 (Version 1)
Quarter: 2013Q2

REPORT INFORMATION
  Report Type: Spontaneous
  Country: US (occurrence: US)
  Receive Date: 20130527
  Receipt Date: 20130527
  Transmission Date: 20140414
  Serious: No
  Sender: FDA-Public Use
  Company Number: US-B.I. PHARMACEUTICALS,INC./RIDGEFIELD-2013-BI-14435BP

PATIENT
  Age: 57 Year
  Sex: Female

DRUGS (10)
  1. MELOXICAM [Suspect]
     Indication: ANTIINFLAMMATORY THERAPY
  2. AMPYRA [Suspect]
     Indication: GAIT DISTURBANCE
     Dosage: 20 MG
     Route: 048
     Dates: start: 20110215, end: 201211
  3. AMPYRA [Suspect]
     Dosage: 10 MG
     Route: 048
     Dates: start: 201211
  4. COPAXONE [Concomitant]
  5. VESICARE [Concomitant]
  6. REQUIP [Concomitant]
  7. GABAPENTIN [Concomitant]
  8. HYDROCODONE [Concomitant]
  9. LIPITOR [Concomitant]
  10. CYMBALTA [Concomitant]

REACTIONS (1)
  - Gastrooesophageal reflux disease [Not Recovered/Not Resolved]
